FAERS Safety Report 5032066-2 (Version None)
Quarter: 2006Q2

REPORT INFORMATION
  Report Type: 
  Country: None (occurrence: None)
  Receive Date: 20060619
  Receipt Date: 20060611
  Transmission Date: 20061013
  Serious: Yes (Other)
  Sender: FDA-Public Use
  Company Number: CHPA2006US05724

PATIENT
  Age: 35 Year
  Sex: Male
  Weight: 99.8 kg

DRUGS (1)
  1. THERAFLU HOT LIQUID MEDICINE UNKNOWN (NCH) (UNKNOWN) POWDER [Suspect]
     Indication: PHARYNGOLARYNGEAL PAIN
     Dosage: 1 DF, Q12H, ORAL
     Route: 048
     Dates: start: 20060604

REACTIONS (3)
  - DYSARTHRIA [None]
  - HYPOAESTHESIA [None]
  - MASTICATION DISORDER [None]
